FAERS Safety Report 22040589 (Version 1)
Quarter: 2023Q1

REPORT INFORMATION
  Report Type: Other
  Country: TW (occurrence: TW)
  Receive Date: 20230227
  Receipt Date: 20230227
  Transmission Date: 20230418
  Serious: Yes (Hospitalization, Other)
  Sender: FDA-Public Use
  Company Number: TW-Bion-011244

PATIENT
  Age: 41 Year
  Sex: Female

DRUGS (5)
  1. VALPROIC ACID [Suspect]
     Active Substance: VALPROIC ACID
     Indication: Schizophrenia
  2. CLOZAPINE [Concomitant]
     Active Substance: CLOZAPINE
     Indication: Schizophrenia
     Dates: start: 2007
  3. HALOPERIDOL [Concomitant]
     Active Substance: HALOPERIDOL
     Indication: Schizophrenia
  4. PALIPERIDONE PALMITATE [Concomitant]
     Active Substance: PALIPERIDONE PALMITATE
     Indication: Schizophrenia
  5. NIRMATRELVIR\RITONAVIR [Concomitant]
     Active Substance: NIRMATRELVIR\RITONAVIR
     Indication: Schizophrenia
     Dosage: 150/100MG

REACTIONS (2)
  - Neutropenia [Unknown]
  - Drug interaction [Unknown]
